FAERS Safety Report 24241256 (Version 1)
Quarter: 2024Q3

REPORT INFORMATION
  Report Type: Spontaneous
  Country: UY (occurrence: UY)
  Receive Date: 20240823
  Receipt Date: 20240823
  Transmission Date: 20241017
  Serious: Yes (Other)
  Sender: ROCHE
  Company Number: UY-ROCHE-10000062823

PATIENT
  Sex: Female

DRUGS (1)
  1. GAZYVA [Suspect]
     Active Substance: OBINUTUZUMAB
     Indication: Product used for unknown indication
     Dosage: FREQUENCY WAS NOT REPORTED
     Route: 065
     Dates: start: 20240817

REACTIONS (1)
  - Escherichia test positive [Recovering/Resolving]
